FAERS Safety Report 12205234 (Version 3)
Quarter: 2016Q2

REPORT INFORMATION
  Report Type: Report from Study
  Country: US (occurrence: US)
  Receive Date: 20160323
  Receipt Date: 20160411
  Transmission Date: 20160815
  Serious: Yes (Other)
  Sender: FDA-Public Use
  Company Number: US-SA-2016SA056357

PATIENT
  Age: 62 Year
  Sex: Female
  Weight: 131.54 kg

DRUGS (24)
  1. TOUJEO [Suspect]
     Active Substance: INSULIN GLARGINE
     Indication: TYPE 2 DIABETES MELLITUS
     Dosage: DOSE:100 UNIT(S)
     Route: 058
  2. SOLOSTAR [Concomitant]
     Active Substance: DEVICE
     Dates: start: 2015
  3. XYLOCAINE [Concomitant]
     Active Substance: LIDOCAINE HYDROCHLORIDE
     Dosage: STRENGTH: 2% JELLY?APPLIED WITH Q TIP TO EACH ORAL ULCER AS NEEDE FOR PAIN OR BEFORE EATING
  4. ZESTRIL [Concomitant]
     Active Substance: LISINOPRIL
     Route: 048
  5. MIRAPEX [Concomitant]
     Active Substance: PRAMIPEXOLE DIHYDROCHLORIDE
     Route: 048
  6. COUMADIN [Concomitant]
     Active Substance: WARFARIN SODIUM
     Dosage: DOSE: ALTERNATES 10 MG AND 5 MG DAILY
     Route: 048
  7. LANTUS [Concomitant]
     Active Substance: INSULIN GLARGINE
  8. WARFARIN [Concomitant]
     Active Substance: WARFARIN
     Indication: THROMBOSIS
  9. NORCO [Concomitant]
     Active Substance: ACETAMINOPHEN\HYDROCODONE BITARTRATE
     Route: 048
  10. MAGIC MOUTHWASH [Concomitant]
     Active Substance: DIPHENHYDRAMINE HYDROCHLORIDE\LIDOCAINE HYDROCHLORIDE\NYSTATIN
     Dosage: SWISH AND SPIT 15 ML THREE TIMES A DAY FOR 2 WEEKS AND THEN AS NEEDED
  11. MAGNESIUM [Concomitant]
     Active Substance: MAGNESIUM
     Route: 048
  12. PRINIVIL [Concomitant]
     Active Substance: LISINOPRIL
     Route: 048
  13. NOVOLOG [Concomitant]
     Active Substance: INSULIN ASPART
     Indication: TYPE 2 DIABETES MELLITUS
  14. OMEPRAZOLE. [Concomitant]
     Active Substance: OMEPRAZOLE
     Route: 048
  15. LOPRESSOR [Concomitant]
     Active Substance: METOPROLOL TARTRATE
     Indication: HYPERTENSION
     Route: 048
  16. TRICOR [Concomitant]
     Active Substance: FENOFIBRATE
     Route: 048
  17. LASIX [Concomitant]
     Active Substance: FUROSEMIDE
     Route: 048
  18. VITAMIN D [Concomitant]
     Active Substance: CHOLECALCIFEROL
     Dosage: 50,000 UNIT CAP
  19. TOUJEO [Suspect]
     Active Substance: INSULIN GLARGINE
     Indication: TYPE 2 DIABETES MELLITUS
     Dosage: DOSE:145 UNIT(S)
     Route: 058
     Dates: start: 2015
  20. LISINOPRIL. [Concomitant]
     Active Substance: LISINOPRIL
     Indication: HYPERTENSION
  21. EPIPEN [Concomitant]
     Active Substance: EPINEPHRINE
     Dosage: ROUTE: UNSPECIFIED PARENTERAL ROUTES/ ROUTE AS NEEDED
  22. ECOTRIN [Concomitant]
     Active Substance: ASPIRIN
     Dosage: LOW STRENGTH 81 MG TAB
  23. CYMBALTA [Concomitant]
     Active Substance: DULOXETINE HYDROCHLORIDE
     Indication: DEPRESSION
  24. BUPROPION HYDROCHLORIDE. [Concomitant]
     Active Substance: BUPROPION HYDROCHLORIDE
     Route: 048

REACTIONS (5)
  - Sleep disorder [Not Recovered/Not Resolved]
  - Pain in extremity [Not Recovered/Not Resolved]
  - Tenderness [Not Recovered/Not Resolved]
  - Hand fracture [Not Recovered/Not Resolved]
  - Swelling [Not Recovered/Not Resolved]
